FAERS Safety Report 4532986-9 (Version None)
Quarter: 2004Q4

REPORT INFORMATION
  Report Type: 
  Country: None (occurrence: None)
  Receive Date: 20041220
  Receipt Date: 20041220
  Transmission Date: 20050328
  Serious: Yes (Other)
  Sender: FDA-Public Use
  Company Number: None

PATIENT
  Age: 65 Year
  Sex: Female
  Weight: 72.1219 kg

DRUGS (1)
  1. VIOXX [Suspect]
     Dosage: 1 A DAY

REACTIONS (3)
  - DYSPEPSIA [None]
  - MUSCLE DISORDER [None]
  - PALPITATIONS [None]
